FAERS Safety Report 13579080 (Version 1)
Quarter: 2017Q2

REPORT INFORMATION
  Report Type: Spontaneous
  Country: US (occurrence: US)
  Receive Date: 20170524
  Receipt Date: 20170524
  Transmission Date: 20170830
  Serious: Yes (Death)
  Sender: FDA-Public Use
  Company Number: None

PATIENT
  Age: 48 Year
  Sex: Female

DRUGS (1)
  1. IBRANCE [Suspect]
     Active Substance: PALBOCICLIB
     Indication: NEOPLASM MALIGNANT
     Dosage: 125MG 1 CAPSULE DAILY FOR 21 DAYS, THEN OFF 7 DAYS ORAL
     Route: 048
     Dates: start: 20161110, end: 20170521

REACTIONS (1)
  - Death [None]

NARRATIVE: CASE EVENT DATE: 20170522
